FAERS Safety Report 9474002 (Version 1)
Quarter: 2013Q3

REPORT INFORMATION
  Report Type: Spontaneous
  Country: FR (occurrence: FR)
  Receive Date: 20130823
  Receipt Date: 20130823
  Transmission Date: 20140515
  Serious: Yes (Hospitalization)
  Sender: FDA-Public Use
  Company Number: FR-SANOFI-AVENTIS-2013SA082532

PATIENT
  Age: 72 Year
  Sex: Female

DRUGS (6)
  1. LOVENOX [Suspect]
     Indication: ATRIAL FIBRILLATION
     Route: 058
     Dates: start: 20120330
  2. PREVISCAN [Suspect]
     Indication: ATRIAL FIBRILLATION
     Route: 048
     Dates: start: 20120330, end: 201204
  3. LYRICA [Suspect]
     Indication: PRODUCT USED FOR UNKNOWN INDICATION
     Route: 048
     Dates: start: 2012, end: 201204
  4. NOVOMIX [Concomitant]
     Indication: TYPE 1 DIABETES MELLITUS
  5. INSULATARD [Concomitant]
  6. ATACAND [Concomitant]

REACTIONS (2)
  - Hepatocellular injury [Unknown]
  - Cholestasis [Unknown]
